FAERS Safety Report 5608550-7 (Version None)
Quarter: 2008Q1

REPORT INFORMATION
  Report Type: 
  Country: None (occurrence: None)
  Receive Date: 20080125
  Receipt Date: 20080114
  Transmission Date: 20080703
  Serious: Yes (Life-Threatening)
  Sender: FDA-Public Use
  Company Number: CHNY2007IT03869

PATIENT
  Age: 43 Year
  Sex: Female

DRUGS (1)
  1. NEOCIBALENA (NCH)(CAFFEINE CITRATE, ACETYLSALICYLIC ACID, ACETAMINOPHE [Suspect]
     Indication: DYSMENORRHOEA
     Dosage: ORAL
     Route: 048
     Dates: start: 20070910, end: 20070910

REACTIONS (1)
  - ANAPHYLACTIC REACTION [None]
